FAERS Safety Report 5273851-1 (Version None)
Quarter: 2007Q1

REPORT INFORMATION
  Report Type: 
  Country: None (occurrence: None)
  Receive Date: 20070323
  Receipt Date: 20070319
  Transmission Date: 20070707
  Serious: Yes (Other)
  Sender: FDA-Public Use
  Company Number: AR-ROCHE-479015

PATIENT
  Age: 18 Year
  Sex: Female

DRUGS (4)
  1. ROACCUTAN [Suspect]
     Indication: ACNE
     Route: 048
     Dates: start: 20061201, end: 20061225
  2. ROACCUTAN [Suspect]
     Route: 048
     Dates: start: 20070106, end: 20070110
  3. UNSPECIFIED MEDICATION [Concomitant]
     Dosage: DRUG REPORTED AS ANTIEPASMODIC THERAPY.
  4. CONTRACEPTIVE DRUG NOS [Concomitant]

REACTIONS (2)
  - NO ADVERSE EFFECT [None]
  - PREGNANCY [None]
